FAERS Safety Report 14383971 (Version 2)
Quarter: 2018Q2

REPORT INFORMATION
  Report Type: Report from Study
  Country: None (occurrence: US)
  Receive Date: 20180115
  Receipt Date: 20180531
  Transmission Date: 20180711
  Serious: Yes (Hospitalization, Other)
  Sender: FDA-Public Use
  Company Number: US-ABBVIE-17K-163-2061664-00

PATIENT
  Sex: Male

DRUGS (2)
  1. HUMIRA [Suspect]
     Active Substance: ADALIMUMAB
     Indication: ANKYLOSING SPONDYLITIS
  2. HUMIRA [Suspect]
     Active Substance: ADALIMUMAB
     Indication: CROHN^S DISEASE
     Route: 058

REACTIONS (13)
  - Dehydration [Unknown]
  - Hypotension [Unknown]
  - Asthenia [Unknown]
  - Meniscus injury [Unknown]
  - Diarrhoea [Recovered/Resolved]
  - Accident at work [Unknown]
  - Irritable bowel syndrome [Recovered/Resolved]
  - Therapeutic response shortened [Unknown]
  - Constipation [Unknown]
  - Insomnia [Unknown]
  - Neck surgery [Recovered/Resolved]
  - Back pain [Unknown]
  - Dehydration [Recovered/Resolved]

NARRATIVE: CASE EVENT DATE: 2011
